FAERS Safety Report 5804266-2 (Version None)
Quarter: 2008Q3

REPORT INFORMATION
  Report Type: 
  Country: None (occurrence: None)
  Receive Date: 20080702
  Receipt Date: 20070822
  Transmission Date: 20090109
  Serious: Yes (Other)
  Sender: FDA-Public Use
  Company Number: HQWYE781223AUG07

PATIENT
  Age: 60 Year
  Sex: Female
  Weight: 73.55 kg

DRUGS (3)
  1. ADVIL [Suspect]
     Indication: BACK PAIN
     Dosage: 2 TABLET 3X PER 1 DAY, ORAL
     Route: 048
     Dates: start: 20070811, end: 20070821
  2. OXYBUTYNIN CHLORIDE [Suspect]
  3. SYNTHROID [Concomitant]

REACTIONS (2)
  - BLADDER CATHETERISATION [None]
  - DRUG INTERACTION [None]
